FAERS Safety Report 10182857 (Version 1)
Quarter: 2014Q2

REPORT INFORMATION
  Report Type: Spontaneous
  Country: GB (occurrence: None)
  Receive Date: 20140516
  Receipt Date: 20140516
  Transmission Date: 20141212
  Serious: Yes (Other)
  Sender: FDA-Public Use
  Company Number: AUR-APL-2014-05623

PATIENT
  Sex: 0

DRUGS (8)
  1. AMOXICILLIN+CLAVULANIC ACID (CLAVULANIC ACID, AMOXICILLIN) [Suspect]
     Indication: ANAESTHESIA
     Route: 064
  2. PARACETAMOL (PARACETAMOL) [Suspect]
     Indication: ANAESTHESIA
     Route: 064
  3. MORPHINE [Suspect]
     Indication: ANAESTHESIA
     Route: 064
  4. ROCURONIUM (ROCURONIUM) [Suspect]
     Indication: ANAESTHESIA
     Route: 064
  5. SUXAMETHONIUM [Suspect]
     Indication: ANAESTHESIA
     Route: 064
  6. ENOXAPARIN (ENOXAPARIN) [Suspect]
     Indication: PULMONARY EMBOLISM
     Route: 064
  7. THIOPENTAL [Suspect]
     Indication: ANAESTHESIA
     Route: 064
  8. ALFENTANIL [Suspect]
     Indication: ANAESTHESIA
     Route: 064

REACTIONS (9)
  - Overdose [None]
  - Toxicity to various agents [None]
  - Vomiting [None]
  - Foetal hypokinesia [None]
  - Haemorrhage in pregnancy [None]
  - Pulmonary embolism [None]
  - Uterine contractions abnormal [None]
  - Foetal heart rate deceleration abnormality [None]
  - Exposure during pregnancy [None]
